FAERS Safety Report 8543078-6 (Version None)
Quarter: 2012Q3

REPORT INFORMATION
  Report Type: 
  Country: None (occurrence: None)
  Receive Date: 20120727
  Receipt Date: 20120417
  Transmission Date: 20120928
  Serious: No
  Sender: FDA-Public Use
  Company Number: US-MYLANLABS-2011S1012586

PATIENT
  Age: 38 Year
  Sex: Female

DRUGS (2)
  1. LEVOTHYROXINE SODIUM [Suspect]
     Indication: HYPOTHYROIDISM
     Route: 048
     Dates: start: 20090101
  2. ADDERALL 5 [Concomitant]
     Route: 048

REACTIONS (7)
  - TREMOR [None]
  - FEELING ABNORMAL [None]
  - HEADACHE [None]
  - ALOPECIA [None]
  - TONGUE BITING [None]
  - BLOOD GLUCOSE FLUCTUATION [None]
  - HAIR COLOUR CHANGES [None]
